FAERS Safety Report 4603372-8 (Version None)
Quarter: 2005Q1

REPORT INFORMATION
  Report Type: 
  Country: None (occurrence: None)
  Receive Date: 20050308
  Receipt Date: 20050223
  Transmission Date: 20050727
  Serious: Yes (Other)
  Sender: FDA-Public Use
  Company Number: 2005037847

PATIENT
  Age: 34 Year
  Sex: Female

DRUGS (1)
  1. VFEND [Suspect]
     Indication: PROPHYLAXIS

REACTIONS (2)
  - COUGH [None]
  - ZYGOMYCOSIS [None]
